FAERS Safety Report 8999397 (Version 1)
Quarter: 2013Q1

REPORT INFORMATION
  Report Type: Spontaneous
  Country: US (occurrence: US)
  Receive Date: 20130103
  Receipt Date: 20130103
  Transmission Date: 20140127
  Serious: Yes (Other)
  Sender: FDA-Public Use
  Company Number: US-TEVA-378501USA

PATIENT
  Age: 55 Year
  Sex: Male

DRUGS (2)
  1. FLUOROURACIL [Suspect]
     Indication: ANAL CANCER
     Dosage: 1000 MG/M2 OVER 4 DAYS
     Route: 065
     Dates: start: 200601
  2. CISPLATIN [Concomitant]
     Indication: ANAL CANCER
     Dosage: 60 MG/M2; ONE DOSE
     Route: 065
     Dates: start: 200601

REACTIONS (1)
  - Arteriospasm coronary [Recovered/Resolved]
